FAERS Safety Report 20623072 (Version 1)
Quarter: 2022Q1

REPORT INFORMATION
  Report Type: Spontaneous
  Country: CO (occurrence: CO)
  Receive Date: 20220322
  Receipt Date: 20220322
  Transmission Date: 20220424
  Serious: Yes (Death, Hospitalization, Other)
  Sender: FDA-Public Use
  Company Number: CO-AMGEN-COLSP2022045072

PATIENT
  Age: 49 Year
  Sex: Male
  Weight: 73.1 kg

DRUGS (5)
  1. MVASI [Suspect]
     Active Substance: BEVACIZUMAB-AWWB
     Indication: Rectal cancer
     Dosage: 260 MILLIGRAM
     Route: 065
     Dates: start: 20210619, end: 20210619
  2. FLUOROURACIL [Concomitant]
     Active Substance: FLUOROURACIL
     Indication: Rectal cancer
     Dosage: 570 MILLIGRAM
     Dates: start: 20210619, end: 20210619
  3. FLUOROURACIL [Concomitant]
     Active Substance: FLUOROURACIL
     Dosage: 3450 MILLIGRAM
     Dates: start: 20210619, end: 20210619
  4. LEUCOVORIN CALCIUM [Concomitant]
     Active Substance: LEUCOVORIN CALCIUM
     Indication: Rectal cancer
     Dosage: 500 MILLIGRAM
     Dates: start: 20210619, end: 20210619
  5. IRINOTECAN [Concomitant]
     Active Substance: IRINOTECAN
     Indication: Rectal cancer
     Dosage: 260 MILLIGRAM
     Dates: start: 20210619, end: 20210619

REACTIONS (2)
  - COVID-19 [Fatal]
  - Altered state of consciousness [Fatal]

NARRATIVE: CASE EVENT DATE: 20210622
